FAERS Safety Report 18013615 (Version 1)
Quarter: 2020Q3

REPORT INFORMATION
  Report Type: Spontaneous
  Country: US (occurrence: US)
  Receive Date: 20200711
  Receipt Date: 20200711
  Transmission Date: 20201103
  Serious: Yes (Other)
  Sender: FDA-Public Use
  Company Number: None

PATIENT
  Age: 43 Year
  Sex: Female
  Weight: 107.55 kg

DRUGS (4)
  1. FEMICLEAR 2 DAY [Suspect]
     Active Substance: CALENDULA OFFICINALIS FLOWERING TOP\MELALEUCA CAJUPUTI LEAF OIL\OLEA EUROPAEA FRUIT VOLATILE OIL
     Indication: FUNGAL INFECTION
     Dosage: ?          QUANTITY:1 INJECTION(S);?
     Route: 067
     Dates: start: 20200709, end: 20200710
  2. VITAMINS [Concomitant]
     Active Substance: VITAMINS
  3. FIBER [Concomitant]
     Active Substance: PSYLLIUM HUSK
  4. BIOTIN [Concomitant]
     Active Substance: BIOTIN

REACTIONS (4)
  - Vulvovaginal burning sensation [None]
  - Pain [None]
  - Paraesthesia [None]
  - Gait disturbance [None]

NARRATIVE: CASE EVENT DATE: 20200710
